FAERS Safety Report 10762109 (Version 2)
Quarter: 2015Q2

REPORT INFORMATION
  Report Type: Spontaneous
  Country: US (occurrence: US)
  Receive Date: 20150204
  Receipt Date: 20150504
  Transmission Date: 20150821
  Serious: Yes (Other)
  Sender: FDA-Public Use
  Company Number: US-BAYER-2015-016259

PATIENT
  Age: 21 Year
  Sex: Female
  Weight: 58.96 kg

DRUGS (2)
  1. MIRENA [Suspect]
     Active Substance: LEVONORGESTREL
     Indication: CONTRACEPTION
     Dosage: 20 MCG/24HR, CONT
     Route: 015
     Dates: start: 20150115, end: 20150128
  2. IBUPROFENE [Concomitant]
     Active Substance: IBUPROFEN
     Indication: DYSMENORRHOEA

REACTIONS (3)
  - Genital haemorrhage [None]
  - Abdominal pain lower [Recovered/Resolved]
  - Device expulsion [None]

NARRATIVE: CASE EVENT DATE: 201501
